FAERS Safety Report 9098705 (Version 1)
Quarter: 2013Q1

REPORT INFORMATION
  Report Type: Spontaneous
  Country: JP (occurrence: JP)
  Receive Date: 20130214
  Receipt Date: 20130214
  Transmission Date: 20140127
  Serious: Yes (Other)
  Sender: FDA-Public Use
  Company Number: JP-TEVA-384494ISR

PATIENT
  Age: 61 Year
  Sex: Male

DRUGS (1)
  1. MEXILETINE [Suspect]
     Dates: start: 201112, end: 201201

REACTIONS (1)
  - Drug reaction with eosinophilia and systemic symptoms [Unknown]
